FAERS Safety Report 7769071-9 (Version None)
Quarter: 2011Q3

REPORT INFORMATION
  Report Type: 
  Country: None (occurrence: None)
  Receive Date: 20110922
  Receipt Date: 20100330
  Transmission Date: 20111222
  Serious: No
  Sender: FDA-Public Use
  Company Number: US-ASTRAZENECA-2006UW05825

PATIENT
  Sex: Female

DRUGS (6)
  1. MIRTAZAPINE [Concomitant]
     Dates: start: 20040429
  2. LEXAPRO [Concomitant]
     Dates: start: 20040712
  3. ZYPREXA [Suspect]
  4. NEURONTIN [Concomitant]
     Dates: start: 20040708
  5. SEROQUEL [Suspect]
     Route: 048
     Dates: start: 20040707
  6. PREVACID [Concomitant]
     Dates: start: 20040407

REACTIONS (1)
  - ILL-DEFINED DISORDER [None]
